FAERS Safety Report 10679154 (Version 1)
Quarter: 2014Q4

REPORT INFORMATION
  Report Type: Spontaneous
  Country: CN (occurrence: CN)
  Receive Date: 20141229
  Receipt Date: 20141229
  Transmission Date: 20150529
  Serious: Yes (Other)
  Sender: FDA-Public Use
  Company Number: CN-PFIZER INC-2014356632

PATIENT
  Age: 82 Year
  Sex: Male
  Weight: 48 kg

DRUGS (2)
  1. SOLU-MEDROL [Suspect]
     Active Substance: METHYLPREDNISOLONE SODIUM SUCCINATE
     Dosage: 40 MG, 2X/DAY
     Route: 041
     Dates: start: 20121230
  2. SOLU-MEDROL [Suspect]
     Active Substance: METHYLPREDNISOLONE SODIUM SUCCINATE
     Indication: MUSCLE SPASMS
     Dosage: 80 MG, 2X/DAY
     Route: 041
     Dates: start: 20121228, end: 20121229

REACTIONS (8)
  - Delirium [Recovering/Resolving]
  - Psychotic disorder [Recovering/Resolving]
  - Restlessness [Recovering/Resolving]
  - Speech disorder [Recovering/Resolving]
  - Altered state of consciousness [Recovering/Resolving]
  - Insomnia [Recovering/Resolving]
  - Anger [Recovering/Resolving]
  - Dyspnoea [Recovering/Resolving]

NARRATIVE: CASE EVENT DATE: 20121230
